APPROVED DRUG PRODUCT: OXALIPLATIN
Active Ingredient: OXALIPLATIN
Strength: 100MG/20ML (5MG/ML)
Dosage Form/Route: INJECTABLE;INTRAVENOUS
Application: A219765 | Product #002 | TE Code: AP
Applicant: SHANDONG NEW TIME PHARMACEUTICAL CO LTD
Approved: Jan 15, 2026 | RLD: No | RS: No | Type: RX